FAERS Safety Report 11660372 (Version 1)
Quarter: 2015Q4

REPORT INFORMATION
  Report Type: Spontaneous
  Country: US (occurrence: None)
  Receive Date: 20151023
  Receipt Date: 20151023
  Transmission Date: 20160304
  Serious: Yes (Hospitalization)
  Sender: FDA-Public Use
  Company Number: None

PATIENT
  Age: 62 Year
  Sex: Male
  Weight: 145 kg

DRUGS (1)
  1. CETUXIMAB [Suspect]
     Active Substance: CETUXIMAB
     Indication: TONGUE CANCER METASTATIC
     Dosage: 600 MG  ONCE  IV
     Route: 042
     Dates: start: 20150706, end: 20150706

REACTIONS (7)
  - Feeling jittery [None]
  - Blood pressure increased [None]
  - Tremor [None]
  - Pallor [None]
  - Chills [None]
  - Dyspnoea [None]
  - Chest pain [None]

NARRATIVE: CASE EVENT DATE: 20150706
